FAERS Safety Report 5855991-9 (Version None)
Quarter: 2008Q3

REPORT INFORMATION
  Report Type: 
  Country: None (occurrence: None)
  Receive Date: 20080825
  Receipt Date: 20080825
  Transmission Date: 20090109
  Serious: Yes (Life-Threatening, Hospitalization, Disabling, Other)
  Sender: FDA-Public Use
  Company Number: None

PATIENT
  Age: 64 Year
  Sex: Male
  Weight: 73.9363 kg

DRUGS (4)
  1. HEPARIN [Suspect]
     Indication: ANGIOGRAM
     Dosage: IV
     Route: 042
     Dates: start: 20080702, end: 20080702
  2. HEPARIN [Suspect]
     Indication: ANGIOPLASTY
     Dosage: IV
     Route: 042
     Dates: start: 20080702, end: 20080702
  3. HEPARIN [Suspect]
     Indication: CATHETERISATION CARDIAC
     Dosage: IV
     Route: 042
     Dates: start: 20080702, end: 20080702
  4. INTEGRILIN [Suspect]

REACTIONS (3)
  - ANAPHYLACTIC REACTION [None]
  - COGNITIVE DISORDER [None]
  - HAEMORRHAGE INTRACRANIAL [None]
